FAERS Safety Report 11376860 (Version 3)
Quarter: 2016Q1

REPORT INFORMATION
  Report Type: Spontaneous
  Country: US (occurrence: US)
  Receive Date: 20150813
  Receipt Date: 20160225
  Transmission Date: 20160525
  Serious: No
  Sender: FDA-Public Use
  Company Number: US-009507513-1508USA004400

PATIENT
  Sex: Female
  Weight: 65.44 kg

DRUGS (2)
  1. NEXPLANON [Suspect]
     Active Substance: ETONOGESTREL
     Dosage: 1 UNK, UNK
     Route: 059
     Dates: start: 20150807
  2. NEXPLANON [Suspect]
     Active Substance: ETONOGESTREL
     Indication: CONTRACEPTION
     Dosage: 1 ROD PER 3 YEARS
     Route: 059
     Dates: start: 20140116, end: 20150807

REACTIONS (2)
  - No adverse event [Unknown]
  - Device breakage [Recovered/Resolved]
